FAERS Safety Report 14336857 (Version 2)
Quarter: 2018Q1

REPORT INFORMATION
  Report Type: Spontaneous
  Country: PT (occurrence: PT)
  Receive Date: 20171229
  Receipt Date: 20180309
  Transmission Date: 20180509
  Serious: Yes (Death, Life-Threatening, Hospitalization)
  Sender: FDA-Public Use
  Company Number: PT-WEST-WARD PHARMACEUTICALS CORP.-PT-H14001-17-05185

PATIENT
  Age: 61 Year
  Sex: Male
  Weight: 75 kg

DRUGS (18)
  1. THIAMINE. [Concomitant]
     Active Substance: THIAMINE
     Indication: ALCOHOL WITHDRAWAL SYNDROME
     Route: 065
  2. THIAMINE. [Concomitant]
     Active Substance: THIAMINE
     Dates: start: 20171123, end: 20171206
  3. NORADRENALINA LABESFAL [Concomitant]
     Dates: start: 20171123, end: 20171127
  4. ESOMEPRAZOL NORMON [Concomitant]
     Route: 065
     Dates: start: 20171123, end: 20171206
  5. CALCIUM GLUCONATE LABESFAL 10% [Concomitant]
     Indication: HYPOCALCAEMIA
     Route: 065
     Dates: start: 20171123, end: 20171127
  6. AMIODARONE HIKMA [Suspect]
     Active Substance: AMIODARONE
     Indication: ATRIAL FIBRILLATION
     Route: 042
     Dates: start: 20171124, end: 20171125
  7. ESOMEPRAZOL NORMON [Concomitant]
     Active Substance: ESOMEPRAZOLE SODIUM
     Indication: PROPHYLAXIS AGAINST GASTROINTESTINAL ULCER
     Route: 065
     Dates: start: 20171125, end: 20171126
  8. HUMAN SERUM ALBUMIN [Concomitant]
     Active Substance: ALBUMIN HUMAN
     Indication: HEPATORENAL SYNDROME
     Route: 065
  9. ELECTROLYTES NOS [Concomitant]
     Active Substance: ELECTROLYTES NOS
     Indication: PRODUCT USED FOR UNKNOWN INDICATION
     Route: 065
  10. GLYPRESSINE [Concomitant]
     Active Substance: TERLIPRESSIN
     Indication: HYPOTENSION
     Route: 065
     Dates: start: 20171125, end: 20171126
  11. GLYPRESSINE [Concomitant]
     Active Substance: TERLIPRESSIN
     Route: 065
     Dates: start: 20171123, end: 20171128
  12. NORADRENALINA LABESFAL [Concomitant]
     Indication: HYPOTENSION
     Route: 065
     Dates: start: 20171125, end: 20171126
  13. HUMAN SERUM ALBUMIN [Concomitant]
     Active Substance: ALBUMIN HUMAN
     Route: 065
     Dates: start: 20171123, end: 20171128
  14. GLUCOSE [Concomitant]
     Active Substance: DEXTROSE
     Indication: PRODUCT USED FOR UNKNOWN INDICATION
     Route: 065
  15. LACTULOSE. [Concomitant]
     Active Substance: LACTULOSE
     Indication: HEPATIC ENCEPHALOPATHY PROPHYLAXIS
     Route: 065
  16. LACTULOSE. [Concomitant]
     Active Substance: LACTULOSE
     Route: 048
     Dates: start: 20171123, end: 20171206
  17. AMIODARONE HIKMA [Suspect]
     Active Substance: AMIODARONE
     Route: 042
     Dates: start: 20171205
  18. ALBUMINE [Suspect]
     Active Substance: ALBUMIN HUMAN
     Indication: HEPATORENAL SYNDROME
     Route: 065
     Dates: start: 20171123, end: 20171128

REACTIONS (5)
  - Cardiac arrest [Fatal]
  - Extra dose administered [None]
  - Metabolic acidosis [Not Recovered/Not Resolved]
  - Drug administration error [Not Recovered/Not Resolved]
  - Lactic acidosis [Recovered/Resolved]

NARRATIVE: CASE EVENT DATE: 20171125
